FAERS Safety Report 6752687-6 (Version None)
Quarter: 2010Q2

REPORT INFORMATION
  Report Type: 
  Country: None (occurrence: None)
  Receive Date: 20100601
  Receipt Date: 20100601
  Transmission Date: 20101027
  Serious: Yes (Hospitalization, Disabling, Other)
  Sender: FDA-Public Use
  Company Number: None

PATIENT
  Age: 32 Year
  Sex: Male
  Weight: 83.9154 kg

DRUGS (1)
  1. LYRICA [Suspect]
     Indication: NEURALGIA
     Dosage: 100MG TWICE A DAY PO
     Route: 048
     Dates: start: 20100518, end: 20100528

REACTIONS (4)
  - DIPLOPIA [None]
  - FEELING ABNORMAL [None]
  - RHABDOMYOLYSIS [None]
  - SUICIDAL IDEATION [None]
